FAERS Safety Report 9202673 (Version 2)
Quarter: 2013Q2

REPORT INFORMATION
  Report Type: Spontaneous
  Country: US (occurrence: US)
  Receive Date: 20130401
  Receipt Date: 20130417
  Transmission Date: 20140414
  Serious: No
  Sender: FDA-Public Use
  Company Number: US-PFIZER INC-2013099868

PATIENT
  Sex: Female

DRUGS (2)
  1. LATANOPROST [Suspect]
     Indication: GLAUCOMA
     Dosage: 1 GTT, 1X/DAY (IN HER LEFT EYE)
     Route: 047
     Dates: end: 20130324
  2. LATANOPROST [Suspect]
     Dosage: 1 GTT, 1X/DAY (IN HER LEFT EYE)
     Route: 047

REACTIONS (2)
  - Eye irritation [Recovered/Resolved]
  - Dry eye [Unknown]
